FAERS Safety Report 11801839 (Version 1)
Quarter: 2015Q4

REPORT INFORMATION
  Report Type: Spontaneous
  Country: US (occurrence: US)
  Receive Date: 20151204
  Receipt Date: 20151204
  Transmission Date: 20160305
  Serious: No
  Sender: FDA-Public Use
  Company Number: US-WATSON-2015-20135

PATIENT
  Age: 50 Year
  Sex: Male

DRUGS (1)
  1. PREDNISONE (WATSON LABORATORIES) [Suspect]
     Active Substance: PREDNISONE
     Indication: NECK PAIN
     Dosage: TITRATING DOSE
     Route: 048
     Dates: start: 201502

REACTIONS (1)
  - Tinnitus [Not Recovered/Not Resolved]

NARRATIVE: CASE EVENT DATE: 201502
